FAERS Safety Report 10276711 (Version 1)
Quarter: 2014Q3

REPORT INFORMATION
  Report Type: Spontaneous
  Country: US (occurrence: None)
  Receive Date: 20140701
  Receipt Date: 20140701
  Transmission Date: 20150326
  Serious: Yes (Hospitalization)
  Sender: FDA-Public Use
  Company Number: None

PATIENT
  Age: 71 Year
  Sex: Female
  Weight: 62.6 kg

DRUGS (1)
  1. FLUOROURACIL. [Suspect]
     Active Substance: FLUOROURACIL
     Indication: COLON CANCER
     Route: 042
     Dates: start: 20140623, end: 20140623

REACTIONS (7)
  - Pain in extremity [None]
  - Asthenia [None]
  - Rash generalised [None]
  - Gait disturbance [None]
  - Swelling [None]
  - Dysphagia [None]
  - Stomatitis [None]

NARRATIVE: CASE EVENT DATE: 20140624
